FAERS Safety Report 7903615-9 (Version None)
Quarter: 2011Q4

REPORT INFORMATION
  Report Type: 
  Country: None (occurrence: None)
  Receive Date: 20111109
  Receipt Date: 20111031
  Transmission Date: 20120403
  Serious: Yes (Hospitalization)
  Sender: FDA-Public Use
  Company Number: US-GENZYME-MOZO-1000588

PATIENT
  Age: 68 Year
  Sex: Male

DRUGS (5)
  1. MOZOBIL [Suspect]
     Indication: PRODUCT USED FOR UNKNOWN INDICATION
     Dosage: 20 MG, QD
     Route: 065
     Dates: start: 20110411, end: 20110412
  2. MOZOBIL [Suspect]
     Dosage: UNK
     Route: 065
  3. NEUPOGEN [Suspect]
     Indication: PRODUCT USED FOR UNKNOWN INDICATION
     Dosage: 960 MCG, QD
     Route: 065
     Dates: end: 20110413
  4. STEMGEN [Suspect]
     Indication: PRODUCT USED FOR UNKNOWN INDICATION
     Dosage: 1650 MG, QD
     Route: 065
     Dates: start: 20110411, end: 20110412
  5. NEUPOGEN [Concomitant]
     Indication: PRODUCT USED FOR UNKNOWN INDICATION
     Dosage: UNK

REACTIONS (2)
  - RENAL TUBULAR NECROSIS [None]
  - RENAL FAILURE ACUTE [None]
